FAERS Safety Report 12511230 (Version 2)
Quarter: 2016Q3

REPORT INFORMATION
  Report Type: Spontaneous
  Country: BR (occurrence: BR)
  Receive Date: 20160629
  Receipt Date: 20160707
  Transmission Date: 20161109
  Serious: Yes (Death, Other)
  Sender: FDA-Public Use
  Company Number: BR-009507513-1606BRA012813

PATIENT
  Sex: Female

DRUGS (2)
  1. ROCURON [Suspect]
     Active Substance: ROCURONIUM BROMIDE
     Dosage: UNK
  2. THERAPY UNSPECIFIED [Suspect]
     Active Substance: UNSPECIFIED INGREDIENT
     Dosage: UNK

REACTIONS (2)
  - Therapy non-responder [Unknown]
  - Respiratory distress [Fatal]

NARRATIVE: CASE EVENT DATE: 20160623
